FAERS Safety Report 18312180 (Version 1)
Quarter: 2020Q3

REPORT INFORMATION
  Report Type: Spontaneous
  Country: US (occurrence: US)
  Receive Date: 20200925
  Receipt Date: 20200925
  Transmission Date: 20201103
  Serious: Yes (Other)
  Sender: FDA-Public Use
  Company Number: US-DRREDDYS-USA/USA/20/0126777

PATIENT
  Age: 38 Year
  Sex: Female

DRUGS (8)
  1. ZIPRASIDONE. [Suspect]
     Active Substance: ZIPRASIDONE
     Indication: PRODUCT USED FOR UNKNOWN INDICATION
     Dosage: PATIENT STARTED IN MANIA A LITTLE BIT BEFORE 04 JUL 2020, AND LIKE 17 JUL 2020, THROUGH 24 JUL 2020.
     Route: 048
     Dates: start: 20200704
  2. ZIPRASIDONE. [Suspect]
     Active Substance: ZIPRASIDONE
     Route: 048
  3. CELEBREX [Suspect]
     Active Substance: CELECOXIB
     Indication: PRODUCT USED FOR UNKNOWN INDICATION
     Route: 048
  4. LAMICTAL [Concomitant]
     Active Substance: LAMOTRIGINE
     Dosage: DOSE INCREASED FROM 100 MG TO 150 MG.
  5. ZIPRASIDONE. [Suspect]
     Active Substance: ZIPRASIDONE
     Dosage: DOSAGE INCREASED FROM 60 MG TO 80 MG.
     Route: 048
     Dates: start: 20200729
  6. LAMICTAL [Concomitant]
     Active Substance: LAMOTRIGINE
     Indication: PRODUCT USED FOR UNKNOWN INDICATION
  7. KLONOPIN [Concomitant]
     Active Substance: CLONAZEPAM
     Dosage: DOSE INCREASED FROM 0.5 MG TO 1 MG.
  8. KLONOPIN [Concomitant]
     Active Substance: CLONAZEPAM
     Indication: PRODUCT USED FOR UNKNOWN INDICATION

REACTIONS (4)
  - Drug ineffective [Unknown]
  - Product quality issue [Unknown]
  - Bipolar I disorder [Unknown]
  - Toxicity to various agents [Unknown]
